FAERS Safety Report 7491843-9 (Version None)
Quarter: 2011Q2

REPORT INFORMATION
  Report Type: 
  Country: None (occurrence: None)
  Receive Date: 20110519
  Receipt Date: 20110516
  Transmission Date: 20111010
  Serious: Yes (Hospitalization)
  Sender: FDA-Public Use
  Company Number: DE-BRISTOL-MYERS SQUIBB COMPANY-15747546

PATIENT
  Age: 57 Year
  Sex: Male
  Weight: 82 kg

DRUGS (2)
  1. KEPPRA [Concomitant]
  2. IPILIMUMAB [Suspect]
     Indication: MALIGNANT MELANOMA
     Dosage: VIAL NO:264262-264266
     Route: 042
     Dates: start: 20110311, end: 20110513

REACTIONS (3)
  - HYPOPHYSITIS [None]
  - EOSINOPHILIA [None]
  - HYPOTONIA [None]
